FAERS Safety Report 9805383 (Version 2)
Quarter: 2014Q1

REPORT INFORMATION
  Report Type: Spontaneous
  Country: US (occurrence: US)
  Receive Date: 20140109
  Receipt Date: 20140127
  Transmission Date: 20141002
  Serious: No
  Sender: FDA-Public Use
  Company Number: US-PFIZER INC-2014005513

PATIENT
  Age: 56 Year
  Sex: Female
  Weight: 65.76 kg

DRUGS (8)
  1. LYRICA [Suspect]
     Indication: NEURALGIA
     Dosage: 75 MG, 2X/DAY
  2. LYRICA [Suspect]
     Indication: SPINAL FRACTURE
     Dosage: UNK
  3. LYRICA [Suspect]
     Indication: NERVE COMPRESSION
  4. ZANTAC [Concomitant]
     Indication: GASTROOESOPHAGEAL REFLUX DISEASE
     Dosage: 300 MG, 2X/DAY
  5. EFFEXOR-XR [Concomitant]
     Indication: DEPRESSION
     Dosage: 75 MG, 2X/DAY
  6. LOMOTIL [Concomitant]
     Dosage: UNK (1- 2 TABLETS OF 2.5MG), 4X/DAY
  7. LEVOTHYROXINE [Concomitant]
     Indication: HYPOTHYROIDISM
     Dosage: ^25MG^ DAILY
  8. DICLOFENAC [Concomitant]
     Indication: INFLAMMATION
     Dosage: 75 MG, 2X/DAY

REACTIONS (1)
  - Drug ineffective [Unknown]
